FAERS Safety Report 18124279 (Version 6)
Quarter: 2020Q4

REPORT INFORMATION
  Report Type: Report from Study
  Country: None (occurrence: CA)
  Receive Date: 20200807
  Receipt Date: 20201005
  Transmission Date: 20210113
  Serious: Yes (Hospitalization, Other)
  Sender: FDA-Public Use
  Company Number: CA-HLS-202000904

PATIENT
  Age: 59 Year
  Sex: Female

DRUGS (23)
  1. VENTOLIN 100 MCG INHALER [Concomitant]
     Dosage: 2 PUFF INH
     Route: 065
  2. COLYTE, PEGLYTE [Concomitant]
     Dosage: QHS
     Route: 048
  3. KISGALI [Concomitant]
     Route: 048
  4. CLOZARIL [Suspect]
     Active Substance: CLOZAPINE
     Indication: SCHIZOPHRENIA
     Dosage: QHS
     Route: 048
     Dates: start: 20050530
  5. SELENIUM [Concomitant]
     Active Substance: SELENIUM
     Route: 048
  6. EPIVAL [Concomitant]
     Active Substance: DIVALPROEX SODIUM
     Dosage: QHS
     Route: 048
  7. ZINC GLUCONATE [Concomitant]
     Active Substance: ZINC GLUCONATE
     Dosage: QHS
     Route: 048
  8. IMODIUM [Concomitant]
     Active Substance: LOPERAMIDE HYDROCHLORIDE
     Dosage: 4 MG ONCE PRN MDD 16 MG (8 TABS/DAY)
     Route: 048
  9. HABITROL 21 MG, NICODERM [Concomitant]
     Dosage: 1 PATCH TRANSDERM Q AM
     Route: 065
  10. INDERAL [Concomitant]
     Active Substance: PROPRANOLOL HYDROCHLORIDE
     Dosage: PRN
     Route: 048
  11. ATIVAN [Concomitant]
     Active Substance: LORAZEPAM
     Dosage: AS DIRECTED PRM MDD 2 TABS
     Route: 060
  12. DECADRON [Concomitant]
     Active Substance: DEXAMETHASONE
     Route: 048
  13. ZOMETA [Concomitant]
     Active Substance: ZOLEDRONIC ACID
     Dosage: AS DIRECTED
     Route: 042
  14. CLOZARIL [Suspect]
     Active Substance: CLOZAPINE
     Indication: SCHIZOAFFECTIVE DISORDER
     Dosage: QHS
     Route: 048
     Dates: start: 20050530
  15. FUROSEMIDE. [Concomitant]
     Active Substance: FUROSEMIDE
     Dosage: QAM
     Route: 048
  16. FEMARA [Concomitant]
     Active Substance: LETROZOLE
     Dosage: QAM
     Route: 048
  17. CALTRATE SELECT [Concomitant]
     Route: 065
  18. RIBOCICLIB. [Concomitant]
     Active Substance: RIBOCICLIB
     Indication: BREAST CANCER STAGE IV
     Dosage: 400 MG X 21 D, AND THEN 600 MG FOR 21 DAYS AND THEN 7 DAYS OFF.
     Route: 048
  19. SPIRIVA [Concomitant]
     Active Substance: TIOTROPIUM BROMIDE MONOHYDRATE
     Route: 065
  20. STEMETIL [Concomitant]
     Active Substance: PROCHLORPERAZINE
     Dosage: PRN AS DIRECTED
     Route: 048
  21. SULCRATE PLUS [Concomitant]
     Dosage: AS DIRECTED
     Route: 048
  22. TYLENOL [Concomitant]
     Active Substance: ACETAMINOPHEN
     Dosage: PRN
     Route: 048
  23. NICORETTE [Concomitant]
     Active Substance: NICOTINE
     Dosage: INH AS DIRECTED PRN
     Route: 065

REACTIONS (3)
  - Breast cancer stage IV [Not Recovered/Not Resolved]
  - Metastatic neoplasm [Not Recovered/Not Resolved]
  - Chronic obstructive pulmonary disease [Unknown]

NARRATIVE: CASE EVENT DATE: 201801
